FAERS Safety Report 12590318 (Version 2)
Quarter: 2016Q3

REPORT INFORMATION
  Report Type: Spontaneous
  Country: US (occurrence: US)
  Receive Date: 20160725
  Receipt Date: 20160901
  Transmission Date: 20161109
  Serious: Yes (Hospitalization)
  Sender: FDA-Public Use
  Company Number: US-ALLERGAN-1663626US

PATIENT
  Age: 31 Year
  Sex: Male
  Weight: 86.2 kg

DRUGS (3)
  1. LYRICA [Suspect]
     Active Substance: PREGABALIN
     Indication: PRODUCT USED FOR UNKNOWN INDICATION
     Dosage: 300 MG, BID
  2. NORCO [Suspect]
     Active Substance: ACETAMINOPHEN\HYDROCODONE BITARTRATE
     Indication: BACK PAIN
  3. LUNESTA [Suspect]
     Active Substance: ESZOPICLONE
     Indication: INSOMNIA
     Dosage: 3 MG, QHS
     Route: 048
     Dates: start: 20141024

REACTIONS (3)
  - Cognitive disorder [Recovered/Resolved]
  - Sedation [Recovered/Resolved]
  - Brain injury [Recovered/Resolved]

NARRATIVE: CASE EVENT DATE: 20141024
